FAERS Safety Report 8835078 (Version 2)
Quarter: 2013Q3

REPORT INFORMATION
  Report Type: Spontaneous
  Country: US (occurrence: US)
  Receive Date: 20121010
  Receipt Date: 20130910
  Transmission Date: 20140515
  Serious: Yes (Hospitalization, Disabling, Other)
  Sender: FDA-Public Use
  Company Number: US-009507513-1210USA003166

PATIENT
  Sex: Female

DRUGS (5)
  1. FOSAMAX [Suspect]
     Indication: OSTEOPOROSIS PROPHYLAXIS
     Dosage: 10 MG, UNK
     Route: 048
     Dates: start: 2001, end: 2009
  2. FOSAMAX [Suspect]
     Dosage: 70 MG, UNK
     Route: 048
     Dates: start: 2001, end: 2009
  3. BONIVA [Concomitant]
     Indication: OSTEOPOROSIS PROPHYLAXIS
     Dosage: 150 MG, UNK
     Route: 048
     Dates: start: 2009, end: 2011
  4. PREDNISONE [Concomitant]
     Dosage: UNK
     Dates: start: 20090915
  5. EVISTA [Concomitant]
     Indication: OSTEOPOROSIS
     Dosage: 70 MG, UNK
     Route: 048
     Dates: start: 2011

REACTIONS (9)
  - Femur fracture [Not Recovered/Not Resolved]
  - Intramedullary rod insertion [Unknown]
  - Low turnover osteopathy [Unknown]
  - Fracture nonunion [Unknown]
  - Diabetes mellitus [Unknown]
  - Sleep disorder [Unknown]
  - Arthritis [Unknown]
  - Adverse event [Unknown]
  - Adverse event [Unknown]
